FAERS Safety Report 10514978 (Version 1)
Quarter: 2014Q4

REPORT INFORMATION
  Report Type: Spontaneous
  Country: FR (occurrence: FR)
  Receive Date: 20141013
  Receipt Date: 20141013
  Transmission Date: 20150528
  Serious: Yes (Congenital Anomaly)
  Sender: FDA-Public Use
  Company Number: PHHY2014FR132089

PATIENT
  Sex: Female
  Weight: 2.17 kg

DRUGS (1)
  1. EXTAVIA [Suspect]
     Active Substance: INTERFERON BETA-1B
     Indication: MULTIPLE SCLEROSIS
     Dosage: MATERNAL DOSE 1 MG (250MCG/ML)
     Route: 064

REACTIONS (4)
  - Foetal growth restriction [Not Recovered/Not Resolved]
  - Brain oedema [Recovered/Resolved]
  - Brain injury [Unknown]
  - Seizure [Recovered/Resolved]
